FAERS Safety Report 13368438 (Version 1)
Quarter: 2017Q1

REPORT INFORMATION
  Report Type: Spontaneous
  Country: US (occurrence: US)
  Receive Date: 20170324
  Receipt Date: 20170324
  Transmission Date: 20170429
  Serious: No
  Sender: FDA-Public Use
  Company Number: US-PFIZER INC-2017121136

PATIENT
  Age: 47 Year
  Sex: Female

DRUGS (1)
  1. XELJANZ XR [Suspect]
     Active Substance: TOFACITINIB CITRATE
     Indication: RHEUMATOID ARTHRITIS
     Dosage: 11 MG, DAILY

REACTIONS (8)
  - Fatigue [Unknown]
  - Drug ineffective [Unknown]
  - Lymphadenopathy [Unknown]
  - Rash [Unknown]
  - Headache [Unknown]
  - Weight increased [Unknown]
  - Musculoskeletal pain [Unknown]
  - Neck pain [Unknown]
